FAERS Safety Report 12806054 (Version 3)
Quarter: 2016Q4

REPORT INFORMATION
  Report Type: Spontaneous
  Country: JP (occurrence: JP)
  Receive Date: 20161004
  Receipt Date: 20161128
  Transmission Date: 20170207
  Serious: Yes (Other)
  Sender: FDA-Public Use
  Company Number: JP-ASTELLAS-2016JP014268

PATIENT
  Age: 82 Year
  Sex: Male
  Weight: 46 kg

DRUGS (11)
  1. MEVALOTIN [Concomitant]
     Active Substance: PRAVASTATIN SODIUM
     Indication: HYPERLIPIDAEMIA
     Route: 048
  2. LORELCO [Concomitant]
     Active Substance: PROBUCOL
     Indication: HYPERLIPIDAEMIA
     Route: 048
  3. DEPAS [Concomitant]
     Active Substance: ETIZOLAM
     Indication: INSOMNIA
     Dosage: 0.5 MG, ONCE DAILY
     Route: 048
     Dates: start: 20040205
  4. GASTER [Concomitant]
     Active Substance: FAMOTIDINE
     Indication: CHRONIC GASTRITIS
     Route: 048
  5. FLIVAS [Concomitant]
     Active Substance: NAFTOPIDIL
     Indication: BENIGN PROSTATIC HYPERPLASIA
     Route: 048
     Dates: start: 20021030
  6. PLAVIX [Concomitant]
     Active Substance: CLOPIDOGREL BISULFATE
     Indication: CAROTID ARTERY STENOSIS
     Route: 048
     Dates: start: 20130501
  7. XTANDI [Suspect]
     Active Substance: ENZALUTAMIDE
     Indication: HORMONE-REFRACTORY PROSTATE CANCER
     Route: 048
     Dates: start: 20160523, end: 20160711
  8. XTANDI [Suspect]
     Active Substance: ENZALUTAMIDE
     Route: 048
     Dates: start: 20160815
  9. HERBESSER [Concomitant]
     Active Substance: DILTIAZEM HYDROCHLORIDE
     Indication: HYPERTENSION
     Route: 048
  10. LEUPLIN [Concomitant]
     Active Substance: LEUPROLIDE ACETATE
     Indication: PROSTATE CANCER
     Dosage: 1 DF, EVERY 3 MONTHS
     Route: 058
     Dates: start: 20021130
  11. LEUPLIN [Concomitant]
     Active Substance: LEUPROLIDE ACETATE
     Indication: METASTASES TO BONE

REACTIONS (2)
  - Hyponatraemia [Recovering/Resolving]
  - Intentional underdose [Unknown]

NARRATIVE: CASE EVENT DATE: 20160523
